FAERS Safety Report 7491768-9 (Version None)
Quarter: 2011Q2

REPORT INFORMATION
  Report Type: 
  Country: None (occurrence: None)
  Receive Date: 20110519
  Receipt Date: 20110509
  Transmission Date: 20111010
  Serious: Yes (Other)
  Sender: FDA-Public Use
  Company Number: US-BAYER-201034306NA

PATIENT
  Age: 40 Year
  Sex: Female
  Weight: 55.329 kg

DRUGS (1)
  1. YASMIN [Suspect]
     Indication: PELVIC PAIN
     Route: 048
     Dates: start: 20020901, end: 20030101

REACTIONS (2)
  - DEEP VEIN THROMBOSIS [None]
  - PULMONARY EMBOLISM [None]
